FAERS Safety Report 14480356 (Version 2)
Quarter: 2018Q1

REPORT INFORMATION
  Report Type: Report from Study
  Country: CA (occurrence: CA)
  Receive Date: 20180202
  Receipt Date: 20180313
  Transmission Date: 20180509
  Serious: Yes (Other)
  Sender: FDA-Public Use
  Company Number: CA-JNJFOC-20180127640

PATIENT
  Sex: Female

DRUGS (2)
  1. SIMPONI [Suspect]
     Active Substance: GOLIMUMAB
     Indication: MALABSORPTION
     Route: 058
     Dates: start: 20180209
  2. SIMPONI [Suspect]
     Active Substance: GOLIMUMAB
     Indication: MALABSORPTION
     Route: 058

REACTIONS (5)
  - Drug hypersensitivity [Unknown]
  - Device related infection [Unknown]
  - Product use in unapproved indication [Unknown]
  - Off label use [Unknown]
  - Eye infection [Not Recovered/Not Resolved]
